FAERS Safety Report 22277574 (Version 1)
Quarter: 2023Q2

REPORT INFORMATION
  Report Type: Spontaneous
  Country: RU (occurrence: RU)
  Receive Date: 20230503
  Receipt Date: 20230503
  Transmission Date: 20230721
  Serious: Yes (Life-Threatening)
  Sender: FDA-Public Use
  Company Number: RU-HETERO-HET2023RU01076

PATIENT
  Age: 21 Year
  Sex: Male
  Weight: 75 kg

DRUGS (4)
  1. LEVETIRACETAM [Suspect]
     Active Substance: LEVETIRACETAM
     Indication: Epilepsy
     Dosage: 300 MG
     Route: 048
     Dates: start: 20220615, end: 20220815
  2. ETHOSUXIMIDE [Concomitant]
     Active Substance: ETHOSUXIMIDE
     Indication: Epilepsy
     Dosage: 1250 MG
     Route: 048
     Dates: start: 2011
  3. LAMOTRIGINE [Concomitant]
     Active Substance: LAMOTRIGINE
     Indication: Product used for unknown indication
     Dosage: 150 MG
     Route: 048
     Dates: start: 2011
  4. VALPROIC ACID [Concomitant]
     Active Substance: VALPROIC ACID
     Indication: Epilepsy
     Dosage: 2000 MG
     Route: 048
     Dates: start: 2011

REACTIONS (1)
  - Muscle spasms [Recovering/Resolving]
